FAERS Safety Report 9431766 (Version 1)
Quarter: 2013Q3

REPORT INFORMATION
  Report Type: Spontaneous
  Country: US (occurrence: US)
  Receive Date: 20130731
  Receipt Date: 20130731
  Transmission Date: 20140515
  Serious: No
  Sender: FDA-Public Use
  Company Number: US-B.I. PHARMACEUTICALS,INC./RIDGEFIELD-2013-BI-21917BP

PATIENT
  Age: 7 Decade
  Sex: Male

DRUGS (1)
  1. AGGRENOX [Suspect]
     Dosage: STRENGTH: 25 MG / 200 MG;
     Route: 048

REACTIONS (1)
  - Haemorrhage [Unknown]
